FAERS Safety Report 10378839 (Version 1)
Quarter: 2014Q3

REPORT INFORMATION
  Report Type: Spontaneous
  Country: DE (occurrence: DE)
  Receive Date: 20140812
  Receipt Date: 20140812
  Transmission Date: 20150326
  Serious: Yes (Hospitalization)
  Sender: FDA-Public Use
  Company Number: DE-BAYER-2014-119044

PATIENT
  Age: 47 Year
  Sex: Female

DRUGS (3)
  1. TEGRETOL [Suspect]
     Active Substance: CARBAMAZEPINE
     Indication: TRIGEMINAL NEURALGIA
     Dosage: 300 MG, BID
     Route: 048
     Dates: start: 2009
  2. CIPROBAY [Suspect]
     Active Substance: CIPROFLOXACIN
     Indication: PULPITIS DENTAL
     Dosage: UNK
     Route: 042
     Dates: start: 20140714, end: 20140715
  3. AMOXICILLIN/CLAVULANATE POTASSIUM [Suspect]
     Active Substance: AMOXICILLIN\CLAVULANATE POTASSIUM
     Indication: PULPITIS DENTAL
     Dosage: UNK
     Dates: start: 20140713, end: 20140714

REACTIONS (1)
  - Neuralgia [Recovering/Resolving]

NARRATIVE: CASE EVENT DATE: 20140715
